FAERS Safety Report 17003808 (Version 2)
Quarter: 2019Q4

REPORT INFORMATION
  Report Type: Spontaneous
  Country: AT (occurrence: AT)
  Receive Date: 20191107
  Receipt Date: 20191118
  Transmission Date: 20200122
  Serious: Yes (Other)
  Sender: FDA-Public Use
  Company Number: AT-TEVA-2019-AT-1132196

PATIENT
  Sex: Male

DRUGS (1)
  1. GLATIRAMER ACETATE 20MG [Suspect]
     Active Substance: GLATIRAMER ACETATE
     Dosage: 20 MILLIGRAM DAILY; AMPOULE
     Route: 058
     Dates: end: 200807

REACTIONS (5)
  - Injection related reaction [Unknown]
  - Multiple sclerosis relapse [Unknown]
  - Local reaction [Unknown]
  - Adverse event [Unknown]
  - Facial paralysis [Unknown]

NARRATIVE: CASE EVENT DATE: 200709
